FAERS Safety Report 18124325 (Version 2)
Quarter: 2020Q3

REPORT INFORMATION
  Report Type: Spontaneous
  Country: US (occurrence: US)
  Receive Date: 20200807
  Receipt Date: 20200827
  Transmission Date: 20201103
  Serious: Yes (Hospitalization)
  Sender: FDA-Public Use
  Company Number: US-ABBVIE-20K-163-3514923-00

PATIENT
  Age: 11 Year
  Sex: Female

DRUGS (10)
  1. CLOBAZAM. [Suspect]
     Active Substance: CLOBAZAM
     Indication: SEIZURE
     Dosage: 0.3 MG/KG/DAY
     Route: 048
  2. VALPROIC ACID. [Suspect]
     Active Substance: VALPROIC ACID
     Route: 048
  3. MELATONIN [Suspect]
     Active Substance: MELATONIN
     Indication: PRODUCT USED FOR UNKNOWN INDICATION
     Dosage: HS
     Route: 048
  4. CLOBAZAM. [Suspect]
     Active Substance: CLOBAZAM
     Dosage: 0.5 MG/KG/DAY
     Route: 048
  5. LORATADINE. [Suspect]
     Active Substance: LORATADINE
     Indication: PRODUCT USED FOR UNKNOWN INDICATION
     Route: 048
  6. VALPROIC ACID. [Suspect]
     Active Substance: VALPROIC ACID
     Indication: PRODUCT USED FOR UNKNOWN INDICATION
     Route: 048
  7. CLONIDINE. [Suspect]
     Active Substance: CLONIDINE
     Indication: PRODUCT USED FOR UNKNOWN INDICATION
     Dosage: HS
     Route: 048
  8. CLOBAZAM. [Suspect]
     Active Substance: CLOBAZAM
     Dosage: 0.7 MG/KG/DAY
     Route: 048
  9. DIPHENHYDRAMINE HYDROCHLORIDE. [Suspect]
     Active Substance: DIPHENHYDRAMINE HYDROCHLORIDE
     Indication: PRODUCT USED FOR UNKNOWN INDICATION
     Route: 048
  10. CLOBAZAM. [Suspect]
     Active Substance: CLOBAZAM
     Dosage: 0.3 MG/KG/DAY
     Route: 048

REACTIONS (2)
  - Drug interaction [Unknown]
  - Hypersomnia [Unknown]
